FAERS Safety Report 4442145-6 (Version None)
Quarter: 2004Q3

REPORT INFORMATION
  Report Type: 
  Country: None (occurrence: None)
  Receive Date: 20040903
  Receipt Date: 20040721
  Transmission Date: 20050211
  Serious: Yes (Other)
  Sender: FDA-Public Use
  Company Number: 2004UW15379

PATIENT
  Age: 80 Year
  Sex: Male
  Weight: 58.9676 kg

DRUGS (5)
  1. CRESTOR [Suspect]
     Indication: BLOOD CHOLESTEROL INCREASED
     Dosage: 5 MG DAILY PO
     Route: 048
  2. CRESTOR [Suspect]
     Indication: BLOOD CHOLESTEROL INCREASED
     Dosage: 10 MG DAILY PO
     Route: 048
  3. DIGOXIN [Concomitant]
  4. AXID [Concomitant]
  5. PLAVIX [Concomitant]

REACTIONS (2)
  - ANORECTAL DISORDER [None]
  - CONSTIPATION [None]
